FAERS Safety Report 4604081-1 (Version None)
Quarter: 2005Q1

REPORT INFORMATION
  Report Type: 
  Country: None (occurrence: None)
  Receive Date: 20050309
  Receipt Date: 20050309
  Transmission Date: 20050727
  Serious: Yes (Hospitalization)
  Sender: FDA-Public Use
  Company Number: None

PATIENT
  Age: 62 Year
  Sex: Male
  Weight: 91.6266 kg

DRUGS (2)
  1. PLAVIX [Suspect]
     Indication: STENT PLACEMENT
     Dosage: 75 MG ONCE DAILY ORAL
     Route: 048
     Dates: start: 20040329, end: 20050210
  2. MOBIC [Suspect]
     Indication: ARTHRALGIA
     Dosage: 7.5 MG ONCE DAILY ORAL
     Route: 048
     Dates: start: 20041109, end: 20050210

REACTIONS (1)
  - GASTROINTESTINAL HAEMORRHAGE [None]
